FAERS Safety Report 26129767 (Version 1)
Quarter: 2025Q4

REPORT INFORMATION
  Report Type: Spontaneous
  Country: GB (occurrence: GB)
  Receive Date: 20251208
  Receipt Date: 20251208
  Transmission Date: 20260118
  Serious: Yes (Disabling)
  Sender: STRIDES
  Company Number: None

PATIENT
  Age: 70 Year
  Sex: Female

DRUGS (10)
  1. PREDNISOLONE [Suspect]
     Active Substance: PREDNISOLONE
     Indication: Asthma
     Dosage: 2.5 MILLIGRAM, QD WHICH WAS INCREASED TO 5 MG AND OFTEN 10 MG FOR SOME WEEKS.
     Route: 065
  2. PREDNISOLONE [Suspect]
     Active Substance: PREDNISOLONE
     Indication: Eosinophilic granulomatosis with polyangiitis
     Dosage: 5 MILLIGRAM (2.5 MG DAILY WHICH WAS INCREASED TO 5 MG AND OFTEN 10 MG FOR SOME WEEKS)
     Route: 065
  3. PREDNISOLONE [Suspect]
     Active Substance: PREDNISOLONE
     Dosage: OFTEN 10MG FOR SOME WEEKS
     Route: 065
  4. PREDNISOLONE [Suspect]
     Active Substance: PREDNISOLONE
     Dosage: 3 MILLIGRAM
     Route: 065
     Dates: start: 202405, end: 2024
  5. PREDNISOLONE [Suspect]
     Active Substance: PREDNISOLONE
     Dosage: 2 MILLIGRAM, QD
     Route: 065
     Dates: start: 2024, end: 2024
  6. PREDNISOLONE [Suspect]
     Active Substance: PREDNISOLONE
     Dosage: 1 MILLIGRAM
     Route: 065
     Dates: start: 2024
  7. HYDROCORTISONE [Suspect]
     Active Substance: HYDROCORTISONE
     Indication: Eosinophilic granulomatosis with polyangiitis
     Dosage: 5 MG ON WAKING, 5 MG AT MID-DAY AND 2.5 MG IN THE AFTERNOON
     Route: 065
     Dates: start: 2024
  8. HYDROCORTISONE [Suspect]
     Active Substance: HYDROCORTISONE
     Dosage: 7.5 MILLIGRAM, QD
     Route: 065
     Dates: start: 2024, end: 2024
  9. HYDROCORTISONE [Suspect]
     Active Substance: HYDROCORTISONE
     Dosage: 5 MILLIGRAM, QD
     Route: 065
     Dates: start: 2024, end: 2024
  10. HYDROCORTISONE [Suspect]
     Active Substance: HYDROCORTISONE
     Dosage: IN THE AFTERNOON
     Route: 065
     Dates: start: 2024

REACTIONS (2)
  - Hypothalamic pituitary adrenal axis suppression [Unknown]
  - Off label use [Unknown]

NARRATIVE: CASE EVENT DATE: 20240101
